FAERS Safety Report 16068087 (Version 7)
Quarter: 2019Q2

REPORT INFORMATION
  Report Type: Report from Study
  Country: US (occurrence: US)
  Receive Date: 20190313
  Receipt Date: 20190511
  Transmission Date: 20190711
  Serious: Yes (Death, Life-Threatening, Hospitalization, Other)
  Sender: FDA-Public Use
  Company Number: US-AMGEN-USACT2019038303

PATIENT
  Age: 2 Year
  Sex: Male
  Weight: 13.3 kg

DRUGS (14)
  1. BLINATUMOMAB [Suspect]
     Active Substance: BLINATUMOMAB
     Indication: B PRECURSOR TYPE ACUTE LEUKAEMIA
     Dosage: 15 MICROGRAM/SQ. METER (ON DAYS 1-28)
     Route: 042
     Dates: start: 20190122
  2. CYCLOPHOSPHAMIDE. [Suspect]
     Active Substance: CYCLOPHOSPHAMIDE
     Indication: B PRECURSOR TYPE ACUTE LEUKAEMIA
     Dosage: 440 MILLIGRAM/SQ. METER (VER 15-30 MIN ON DAYS 15-19)
     Route: 042
  3. THIOGUANINE [Suspect]
     Active Substance: THIOGUANINE
     Indication: B PRECURSOR TYPE ACUTE LEUKAEMIA
     Dosage: 40 MILLIGRAM/SQ. METER, QD ( ON DAYS 43-49)
     Route: 048
  4. VINCRISTINE [Suspect]
     Active Substance: VINCRISTINE
     Indication: B PRECURSOR TYPE ACUTE LEUKAEMIA
     Dosage: 1.5 MILLIGRAM/SQ. METER (ON DAY 1)
     Route: 042
  5. ETOPOSIDE. [Suspect]
     Active Substance: ETOPOSIDE
     Indication: B PRECURSOR TYPE ACUTE LEUKAEMIA
     Dosage: 100 MILLIGRAM/SQ. METER (OVER 1-2 HRS ON DAYS 15-19)
     Route: 042
  6. HYDROCORTISONE. [Suspect]
     Active Substance: HYDROCORTISONE
     Dosage: 8-15 MG (ON DAYS 8,29)
     Route: 037
  7. HYDROCORTISONE. [Suspect]
     Active Substance: HYDROCORTISONE
     Indication: B PRECURSOR TYPE ACUTE LEUKAEMIA
     Dosage: 8-15 MG (ON DAYS 8,22)
     Route: 037
  8. CYTARABINE. [Suspect]
     Active Substance: CYTARABINE
     Indication: B PRECURSOR TYPE ACUTE LEUKAEMIA
     Dosage: 16-30 MG  (ON DAYS 8,22)
     Route: 037
  9. MERCAPTOPURINE. [Suspect]
     Active Substance: MERCAPTOPURINE
     Indication: B PRECURSOR TYPE ACUTE LEUKAEMIA
     Dosage: 75 MILLIGRAM/SQ. METER (ON DAYS 1-42)
     Route: 048
  10. DEXAMETHASONE. [Suspect]
     Active Substance: DEXAMETHASONE
     Indication: B PRECURSOR TYPE ACUTE LEUKAEMIA
     Dosage: 3 MILLIGRAM/SQ. METER,  (ORAL OR IV) BID (ON  DAYS 1-5)
     Route: 065
  11. METHOTREXATE. [Suspect]
     Active Substance: METHOTREXATE
     Dosage: 8-15 MG (ON DAYS 8,22)
     Route: 037
  12. PEGASPARGASE [Suspect]
     Active Substance: PEGASPARGASE
     Indication: B PRECURSOR TYPE ACUTE LEUKAEMIA
     Dosage: 2500  IU/M2  (VER 1-2 HRS ON DAY 9 OR 10)
     Route: 042
  13. CYTARABINE. [Suspect]
     Active Substance: CYTARABINE
     Dosage: 16-30 MG  (ON DAYS 8,29)
     Route: 037
  14. METHOTREXATE. [Suspect]
     Active Substance: METHOTREXATE
     Indication: B PRECURSOR TYPE ACUTE LEUKAEMIA
     Dosage: 1000 MILLIGRAM/SQ. METER (OVER 36 HRS ON DAY 8)
     Route: 042

REACTIONS (5)
  - Pericardial effusion [Recovering/Resolving]
  - Hydrocephalus [Recovering/Resolving]
  - Encephalopathy [Recovered/Resolved]
  - Death [Fatal]
  - Hypertension [Recovered/Resolved]

NARRATIVE: CASE EVENT DATE: 20190214
